FAERS Safety Report 22869754 (Version 6)
Quarter: 2024Q1

REPORT INFORMATION
  Report Type: Spontaneous
  Country: US (occurrence: US)
  Receive Date: 20230828
  Receipt Date: 20240307
  Transmission Date: 20240409
  Serious: No
  Sender: FDA-Public Use
  Company Number: US-SA-SAC20230823000506

PATIENT
  Age: 50 Year
  Sex: Female

DRUGS (6)
  1. DUPIXENT [Suspect]
     Active Substance: DUPILUMAB
     Indication: Dermatitis atopic
     Dosage: 300 MG, QOW
     Route: 058
     Dates: start: 20220308
  2. FLUOCINONIDE [Concomitant]
     Active Substance: FLUOCINONIDE
  3. FLUOCINONIDE [Concomitant]
     Active Substance: FLUOCINONIDE
  4. PROTOPIC [Concomitant]
     Active Substance: TACROLIMUS
  5. PROTOPIC [Concomitant]
     Active Substance: TACROLIMUS
  6. TACROLIMUS [Concomitant]
     Active Substance: TACROLIMUS

REACTIONS (6)
  - Rash macular [Unknown]
  - Dermatitis atopic [Unknown]
  - Inappropriate schedule of product administration [Unknown]
  - Rash [Unknown]
  - Skin discomfort [Unknown]
  - Product administered at inappropriate site [Unknown]

NARRATIVE: CASE EVENT DATE: 20231009
